FAERS Safety Report 9748875 (Version 2)
Quarter: 2013Q4

REPORT INFORMATION
  Report Type: Spontaneous
  Country: US (occurrence: US)
  Receive Date: 20131212
  Receipt Date: 20131212
  Transmission Date: 20140711
  Serious: No
  Sender: FDA-Public Use
  Company Number: US-INCYTE CORPORATION-2013IN000995

PATIENT
  Age: 78 Year
  Sex: Female
  Weight: 66.67 kg

DRUGS (7)
  1. JAKAFI [Suspect]
     Indication: MYELOPROLIFERATIVE DISORDER
     Dosage: 10 MG, BID
     Route: 048
     Dates: start: 201303
  2. TOVIAZ ER [Concomitant]
  3. DIOVAN [Concomitant]
  4. ASPIRIN [Concomitant]
  5. CRANBERRY [Concomitant]
  6. OMEPRAZOLE DR [Concomitant]
  7. VYTORIN [Concomitant]

REACTIONS (6)
  - White blood cell count increased [Unknown]
  - Hyperhidrosis [Unknown]
  - Flatulence [Unknown]
  - Red blood cell count decreased [Unknown]
  - Abdominal pain [Unknown]
  - Groin pain [Unknown]
